FAERS Safety Report 7972709 (Version 4)
Quarter: 2013Q4

REPORT INFORMATION
  Report Type: Spontaneous
  Country: US (occurrence: US)
  Receive Date: 20110603
  Receipt Date: 20131002
  Transmission Date: 20140711
  Serious: Yes (Hospitalization, Other)
  Sender: FDA-Public Use
  Company Number: US-BAYER-2010-002195

PATIENT
  Age: 23 Year
  Sex: Female
  Weight: 65.76 kg

DRUGS (7)
  1. YAZ [Suspect]
     Dosage: UNK
     Dates: start: 2007, end: 200910
  2. SULFAMETHOXAZOLE W/TRIMETHOPRIM [Concomitant]
  3. CLINDAMYCIN HYDROCHLORIDE [Concomitant]
     Dosage: 300 MG, UNK
  4. NITROFURANTOIN [Concomitant]
     Dosage: 50 MG, UNK
  5. TERCONAZOLE [Concomitant]
     Dosage: 0.48 CREAM
  6. CEPHALEXIN [Concomitant]
     Dosage: 500 MG, UNK
  7. ASPIRIN [ACETYLSALICYLIC ACID] [Concomitant]
     Dosage: ONE BAYER ASPIRIN A DAY

REACTIONS (21)
  - Cholecystitis chronic [None]
  - Cholelithiasis [None]
  - Abdominal pain upper [None]
  - Ocular icterus [None]
  - Nephrolithiasis [None]
  - Hepatic congestion [None]
  - Hepatic congestion [None]
  - Procedural pain [None]
  - Pyrexia [None]
  - Cough [None]
  - Pneumothorax [None]
  - Cardiac failure [None]
  - Deep vein thrombosis [None]
  - Limb discomfort [None]
  - Pulmonary embolism [None]
  - Chest discomfort [None]
  - Intracardiac thrombus [None]
  - Cold sweat [None]
  - Pallor [None]
  - Heart injury [None]
  - Pericardial haemorrhage [None]
